FAERS Safety Report 21558501 (Version 1)
Quarter: 2022Q4

REPORT INFORMATION
  Report Type: Spontaneous
  Country: AU (occurrence: AU)
  Receive Date: 20221107
  Receipt Date: 20221107
  Transmission Date: 20230113
  Serious: Yes (Other)
  Sender: FDA-Public Use
  Company Number: AU-NOVOPROD-976221

PATIENT

DRUGS (3)
  1. OZEMPIC [Suspect]
     Active Substance: SEMAGLUTIDE
     Indication: Type 2 diabetes mellitus
     Dosage: 1 MG, QW
  2. OZEMPIC [Suspect]
     Active Substance: SEMAGLUTIDE
     Dosage: 2 MG, QW (2 SHOTS OF 1 MG)
  3. OZEMPIC [Suspect]
     Active Substance: SEMAGLUTIDE
     Dosage: 2 MG, QW

REACTIONS (2)
  - Plasma cell myeloma [Unknown]
  - Blood glucose increased [Recovering/Resolving]
